FAERS Safety Report 9675265 (Version 2)
Quarter: 2013Q4

REPORT INFORMATION
  Report Type: Spontaneous
  Country: US (occurrence: US)
  Receive Date: 20131107
  Receipt Date: 20131107
  Transmission Date: 20140711
  Serious: No
  Sender: FDA-Public Use
  Company Number: US-PFIZER INC-2010041102

PATIENT
  Age: 61 Year
  Sex: Male
  Weight: 118 kg

DRUGS (1)
  1. CHANTIX [Suspect]
     Indication: SMOKING CESSATION THERAPY
     Dosage: UNK
     Dates: start: 2010, end: 2010

REACTIONS (2)
  - Abnormal dreams [Recovered/Resolved]
  - Reading disorder [Not Recovered/Not Resolved]
